FAERS Safety Report 10424820 (Version 1)
Quarter: 2014Q3

REPORT INFORMATION
  Report Type: Spontaneous
  Country: HU (occurrence: HU)
  Receive Date: 20140902
  Receipt Date: 20140902
  Transmission Date: 20150326
  Serious: Yes (Hospitalization)
  Sender: FDA-Public Use
  Company Number: PHHY2014HU110640

PATIENT
  Age: 74 Year
  Sex: Female

DRUGS (4)
  1. MARFARIN [Suspect]
     Active Substance: WARFARIN
     Dosage: UNK UKN, UNK
  2. NOOTROPIL [Suspect]
     Active Substance: PIRACETAM
     Dosage: UNK UKN, UNK
  3. CATAFLAM [Suspect]
     Active Substance: DICLOFENAC POTASSIUM
     Indication: PAIN MANAGEMENT
     Dosage: UNK UKN, UNK
  4. BISOPROLOL [Suspect]
     Active Substance: BISOPROLOL
     Dosage: UNK UKN, UNK

REACTIONS (2)
  - Haematemesis [Recovered/Resolved]
  - Melaena [Recovered/Resolved]

NARRATIVE: CASE EVENT DATE: 20130211
